FAERS Safety Report 6330029-8 (Version None)
Quarter: 2009Q3

REPORT INFORMATION
  Report Type: 
  Country: None (occurrence: None)
  Receive Date: 20090825
  Receipt Date: 20090820
  Transmission Date: 20100115
  Serious: Yes (Death)
  Sender: FDA-Public Use
  Company Number: 2009US002751

PATIENT
  Age: 49 Year
  Sex: Female

DRUGS (11)
  1. PROGRAF [Suspect]
     Indication: LIVER TRANSPLANT
     Dosage: 1 MG, BID, ORAL
     Route: 048
     Dates: start: 20060403, end: 20090410
  2. WELLBUTRIN [Concomitant]
  3. LASIX [Concomitant]
  4. PROMETHAZINE [Concomitant]
  5. SEROQUEL [Concomitant]
  6. HUMULIN N [Concomitant]
  7. NOVOLOG [Concomitant]
  8. ANUSOL (PARAFFIN, LIQUID) [Concomitant]
  9. OMEPRAZOLE [Concomitant]
  10. LOPRESSOR [Concomitant]
  11. ZYLOPRIM [Concomitant]

REACTIONS (1)
  - DEATH [None]
